FAERS Safety Report 12529162 (Version 1)
Quarter: 2016Q3

REPORT INFORMATION
  Report Type: Spontaneous
  Country: GB (occurrence: GB)
  Receive Date: 20160705
  Receipt Date: 20160705
  Transmission Date: 20161109
  Serious: Yes (Other)
  Sender: FDA-Public Use
  Company Number: GB-ALLERGAN-1661857US

PATIENT
  Age: 25 Year
  Sex: Male

DRUGS (1)
  1. MESALAMINE UNK [Suspect]
     Active Substance: MESALAMINE
     Indication: COLITIS ULCERATIVE
     Route: 048

REACTIONS (2)
  - Lung disorder [Recovering/Resolving]
  - Organising pneumonia [Recovering/Resolving]
